FAERS Safety Report 18368802 (Version 1)
Quarter: 2020Q4

REPORT INFORMATION
  Report Type: Spontaneous
  Country: US (occurrence: US)
  Receive Date: 20201011
  Receipt Date: 20201011
  Transmission Date: 20210114
  Serious: No
  Sender: FDA-Public Use
  Company Number: US-ASTRAZENECA-2020SF28732

PATIENT
  Sex: Female

DRUGS (1)
  1. FASENRA [Suspect]
     Active Substance: BENRALIZUMAB
     Indication: ASTHMA
     Dosage: EVERY EIGHT WEEKS
     Route: 058
     Dates: start: 201911

REACTIONS (4)
  - Loss of personal independence in daily activities [Unknown]
  - Asthma [Unknown]
  - Feeling abnormal [Unknown]
  - Product dose omission issue [Unknown]
